FAERS Safety Report 6143483-1 (Version None)
Quarter: 2009Q2

REPORT INFORMATION
  Report Type: 
  Country: None (occurrence: None)
  Receive Date: 20090403
  Receipt Date: 20090327
  Transmission Date: 20091009
  Serious: Yes (Hospitalization, Other)
  Sender: FDA-Public Use
  Company Number: PHEH2009US03128

PATIENT
  Sex: Female

DRUGS (1)
  1. RECLAST [Suspect]
     Dosage: UNK
     Dates: start: 20090210

REACTIONS (7)
  - ARTHRALGIA [None]
  - BLOOD ELECTROLYTES DECREASED [None]
  - BLOOD PHOSPHORUS INCREASED [None]
  - BLOOD PRESSURE DECREASED [None]
  - CHEST PAIN [None]
  - CHILLS [None]
  - TREMOR [None]
